FAERS Safety Report 9829235 (Version 2)
Quarter: 2014Q1

REPORT INFORMATION
  Report Type: Report from Study
  Country: US (occurrence: US)
  Receive Date: 20140119
  Receipt Date: 20140122
  Transmission Date: 20141002
  Serious: Yes (Hospitalization)
  Sender: FDA-Public Use
  Company Number: US-ROCHE-1334414

PATIENT
  Sex: Female

DRUGS (10)
  1. XOLAIR [Suspect]
     Indication: ASTHMA
     Route: 058
     Dates: end: 20131118
  2. SINGULAIR [Concomitant]
     Route: 065
  3. SINGULAIR [Concomitant]
     Dosage: 1 TABLET IN EVENING
     Route: 048
  4. SYNTHROID [Concomitant]
     Route: 065
  5. SYNTHROID [Concomitant]
     Dosage: 1 TABLET EVERY AM
     Route: 065
  6. SYMBICORT [Concomitant]
     Dosage: 2 PUFFS
     Route: 065
  7. SYMBICORT [Concomitant]
     Dosage: 160-4.5 MCG, 2 PUFFS
     Route: 065
  8. ALBUTEROL [Concomitant]
     Dosage: 2.5MG/3ML
     Route: 065
  9. PRILOSEC [Concomitant]
     Route: 065
  10. ALBUTEROL SULFATE [Concomitant]
     Dosage: 2 PUFFS AS NEEDED
     Route: 065

REACTIONS (5)
  - Asthma [Unknown]
  - Weight decreased [Unknown]
  - Prolonged expiration [Unknown]
  - Sleep apnoea syndrome [Unknown]
  - Bronchiectasis [Recovering/Resolving]
